FAERS Safety Report 11055290 (Version 2)
Quarter: 2015Q2

REPORT INFORMATION
  Report Type: Report from Study
  Country: DE (occurrence: DE)
  Receive Date: 20150422
  Receipt Date: 20150429
  Transmission Date: 20150821
  Serious: Yes (Hospitalization)
  Sender: FDA-Public Use
  Company Number: DE-JNJFOC-20150413365

PATIENT
  Age: 27 Year
  Sex: Female
  Weight: 95 kg

DRUGS (1)
  1. REMICADE [Suspect]
     Active Substance: INFLIXIMAB
     Indication: CROHN^S DISEASE
     Route: 042
     Dates: start: 20140618, end: 20141217

REACTIONS (11)
  - Diarrhoea [Unknown]
  - Arthritis [Unknown]
  - Lactose intolerance [Unknown]
  - Raynaud^s phenomenon [Unknown]
  - Hypokinesia [Unknown]
  - Musculoskeletal stiffness [Unknown]
  - Lupus-like syndrome [Recovering/Resolving]
  - Scleroderma [Unknown]
  - Alopecia [Unknown]
  - Autoimmune thyroiditis [Unknown]
  - Weight increased [Unknown]

NARRATIVE: CASE EVENT DATE: 201410
